FAERS Safety Report 5085272-5 (Version None)
Quarter: 2006Q3

REPORT INFORMATION
  Report Type: 
  Country: None (occurrence: None)
  Receive Date: 20060731
  Receipt Date: 20051221
  Transmission Date: 20061208
  Serious: Yes (Other)
  Sender: FDA-Public Use
  Company Number: 200512706BWH

PATIENT
  Sex: Male

DRUGS (2)
  1. AVELOX [Suspect]
     Indication: SINUS DISORDER
     Dosage: SEE IMAGE
     Route: 048
     Dates: start: 20051113
  2. AVELOX [Suspect]
     Indication: SINUS DISORDER
     Dosage: SEE IMAGE
     Route: 048
     Dates: start: 20051120

REACTIONS (6)
  - BACK PAIN [None]
  - MUSCLE TIGHTNESS [None]
  - MUSCULOSKELETAL PAIN [None]
  - MYALGIA [None]
  - NODULE [None]
  - PAIN IN EXTREMITY [None]
